FAERS Safety Report 10687672 (Version 1)
Quarter: 2014Q4

REPORT INFORMATION
  Report Type: Spontaneous
  Country: FR (occurrence: None)
  Receive Date: 20141230
  Receipt Date: 20141230
  Transmission Date: 20150529
  Serious: Yes (Hospitalization)
  Sender: FDA-Public Use
  Company Number: 201412IM008039

PATIENT
  Age: 69 Year
  Sex: Male

DRUGS (2)
  1. ESBRIET [Suspect]
     Active Substance: PIRFENIDONE
     Indication: IDIOPATHIC PULMONARY FIBROSIS
     Route: 048
     Dates: start: 20140917
  2. ANTIHYPERTENSIVE TREATMENT [Concomitant]

REACTIONS (2)
  - Bronchitis [None]
  - Herpes zoster [None]

NARRATIVE: CASE EVENT DATE: 20141013
